FAERS Safety Report 21676062 (Version 1)
Quarter: 2022Q4

REPORT INFORMATION
  Report Type: Spontaneous
  Country: US (occurrence: US)
  Receive Date: 20221202
  Receipt Date: 20221202
  Transmission Date: 20230113
  Serious: No
  Sender: FDA-Public Use
  Company Number: US-PERRIGO-22US012572

PATIENT
  Age: 52 Year
  Sex: Female
  Weight: 90.703 kg

DRUGS (1)
  1. FEXOFENADINE HYDROCHLORIDE [Suspect]
     Active Substance: FEXOFENADINE HYDROCHLORIDE
     Indication: Accidental exposure to product
     Dosage: 540 MG, SINGLE
     Route: 048
     Dates: start: 20220919, end: 20220919

REACTIONS (3)
  - Headache [Not Recovered/Not Resolved]
  - Accidental exposure to product [Unknown]
  - Wrong product administered [Unknown]

NARRATIVE: CASE EVENT DATE: 20220919
